FAERS Safety Report 16333424 (Version 2)
Quarter: 2019Q3

REPORT INFORMATION
  Report Type: Report from Study
  Country: None (occurrence: IL)
  Receive Date: 20190520
  Receipt Date: 20190705
  Transmission Date: 20191004
  Serious: Yes (Death, Other)
  Sender: FDA-Public Use
  Company Number: IL-ABBVIE-19S-082-2789298-00

PATIENT
  Sex: Female

DRUGS (1)
  1. DUODOPA [Suspect]
     Active Substance: CARBIDOPA\LEVODOPA
     Indication: PARKINSON^S DISEASE
     Dosage: CURRENT MD- 8 ML, CR- 2.5 ML/ HOUR, CURRENT ED- 1.5 ML
     Route: 050
     Dates: start: 20190115, end: 2019

REACTIONS (15)
  - Pneumonia [Fatal]
  - Pleural effusion [Fatal]
  - Hepatic enzyme increased [Fatal]
  - Metabolic acidosis [Fatal]
  - Seizure [Fatal]
  - Discharge [Fatal]
  - Candida infection [Fatal]
  - Phlebitis [Fatal]
  - Gastrointestinal necrosis [Fatal]
  - Blood lactic acid increased [Fatal]
  - Respiratory disorder [Fatal]
  - Anaphylactic shock [Fatal]
  - Ammonia increased [Fatal]
  - Abdominal wall abscess [Fatal]
  - Cardiac arrest [Fatal]

NARRATIVE: CASE EVENT DATE: 2019
